FAERS Safety Report 6871308-5 (Version None)
Quarter: 2010Q3

REPORT INFORMATION
  Report Type: 
  Country: None (occurrence: None)
  Receive Date: 20100723
  Receipt Date: 20100713
  Transmission Date: 20110219
  Serious: Yes (Hospitalization, Other)
  Sender: FDA-Public Use
  Company Number: DE-PFIZER INC-2010084660

PATIENT
  Age: 57 Year
  Sex: Male

DRUGS (12)
  1. CABERGOLINE [Suspect]
     Indication: RESTLESS LEGS SYNDROME
     Dosage: 4 MG, 1X/DAY
     Route: 048
     Dates: start: 20030101
  2. ASPIRIN [Concomitant]
     Dosage: 100 MG, 1X/DAY
  3. SIMVASTATIN [Concomitant]
     Dosage: 20 MG, 2X/DAY
  4. TOREM [Concomitant]
     Dosage: 10 MG, 2X/DAY
  5. ALLOPURINOL [Concomitant]
     Dosage: 200 MG, 1X/DAY
  6. PANTOZOL [Concomitant]
     Dosage: 40 MG, 1X/DAY
  7. FERRO SANOL [Concomitant]
     Dosage: 20 GTT, 1X/DAY
  8. DELIX PLUS [Concomitant]
     Dosage: 1 DF, 1X/DAY
  9. MADOPAR [Concomitant]
     Indication: RESTLESS LEGS SYNDROME
     Dosage: 50 MG, 3X/DAY
     Dates: start: 20030731, end: 20030822
  10. NACOM - SLOW RELEASE [Concomitant]
     Indication: RESTLESS LEGS SYNDROME
     Dosage: 200 MG, UNK
     Dates: start: 20030731, end: 20030822
  11. PRAMIPEXOLE [Concomitant]
     Dosage: UNK
     Dates: end: 20030101
  12. LORMETAZEPAM [Concomitant]

REACTIONS (18)
  - AORTIC VALVE INCOMPETENCE [None]
  - CARDIAC VALVE DISEASE [None]
  - CEREBROVASCULAR ACCIDENT [None]
  - DEPRESSION SUICIDAL [None]
  - DIVORCED [None]
  - DYSPNOEA [None]
  - FLUID RETENTION [None]
  - HEPATIC CIRRHOSIS [None]
  - HEPATIC STEATOSIS [None]
  - IMPULSE-CONTROL DISORDER [None]
  - LEFT VENTRICULAR HYPERTROPHY [None]
  - MYOCARDITIS [None]
  - OBESITY [None]
  - PATHOLOGICAL GAMBLING [None]
  - PULMONARY HYPERTENSION [None]
  - RENAL CYST [None]
  - SOMNOLENCE [None]
  - SUICIDE ATTEMPT [None]
